FAERS Safety Report 5751755-5 (Version None)
Quarter: 2008Q2

REPORT INFORMATION
  Report Type: 
  Country: None (occurrence: None)
  Receive Date: 20080529
  Receipt Date: 20080523
  Transmission Date: 20081010
  Serious: Yes (Hospitalization)
  Sender: FDA-Public Use
  Company Number: DE-JNJFOC-20080505126

PATIENT
  Age: 6 Year
  Sex: Male

DRUGS (3)
  1. CONCERTA [Suspect]
     Indication: DRUG USE FOR UNKNOWN INDICATION
     Route: 048
  2. MEDIKINET [Suspect]
     Indication: DRUG USE FOR UNKNOWN INDICATION
     Route: 065
  3. IBUPROFEN TABLETS [Interacting]
     Indication: FEBRILE INFECTION
     Route: 048

REACTIONS (4)
  - ANAEMIA [None]
  - DRUG INTERACTION [None]
  - EPISTAXIS [None]
  - VON WILLEBRAND'S DISEASE [None]
